APPROVED DRUG PRODUCT: TYRVAYA
Active Ingredient: VARENICLINE TARTRATE
Strength: EQ 0.03MG BASE/SPRAY
Dosage Form/Route: SPRAY;NASAL
Application: N213978 | Product #001
Applicant: OYSTER POINT PHARMA INC
Approved: Oct 15, 2021 | RLD: Yes | RS: Yes | Type: RX

PATENTS:
Patent 11224598 | Expires: Oct 19, 2035
Patent 10456396 | Expires: Oct 19, 2035
Patent 9597284 | Expires: Oct 19, 2035
Patent 9532944 | Expires: Oct 19, 2035
Patent 9504644 | Expires: Oct 19, 2035
Patent 11911380 | Expires: Oct 19, 2035
Patent 11903943 | Expires: Oct 19, 2035
Patent 11903941 | Expires: Oct 19, 2035
Patent 9504645 | Expires: Oct 19, 2035
Patent 11903942 | Expires: Oct 19, 2035